FAERS Safety Report 8114193-6 (Version None)
Quarter: 2012Q1

REPORT INFORMATION
  Report Type: 
  Country: None (occurrence: None)
  Receive Date: 20120205
  Receipt Date: 20101220
  Transmission Date: 20120608
  Serious: No
  Sender: FDA-Public Use
  Company Number: US-ALLERGAN-1016536US

PATIENT
  Sex: Female

DRUGS (1)
  1. PRED FORTE [Suspect]
     Indication: VISUAL ACUITY REDUCED
     Dosage: UNK
     Route: 047

REACTIONS (3)
  - MACULAR DEGENERATION [None]
  - VISUAL ACUITY REDUCED [None]
  - EYE IRRITATION [None]
